FAERS Safety Report 7719439-1 (Version None)
Quarter: 2011Q3

REPORT INFORMATION
  Report Type: 
  Country: None (occurrence: None)
  Receive Date: 20110830
  Receipt Date: 20110819
  Transmission Date: 20111222
  Serious: Yes (Other)
  Sender: FDA-Public Use
  Company Number: PHHY2011BE75994

PATIENT
  Sex: Male

DRUGS (1)
  1. METHERGINE [Suspect]
     Route: 048
     Dates: start: 19940101

REACTIONS (2)
  - SOMNOLENCE [None]
  - WRONG DRUG ADMINISTERED [None]
